FAERS Safety Report 19836726 (Version 2)
Quarter: 2021Q3

REPORT INFORMATION
  Report Type: Spontaneous
  Country: JP (occurrence: JP)
  Receive Date: 20210914
  Receipt Date: 20210930
  Transmission Date: 20211014
  Serious: No
  Sender: FDA-Public Use
  Company Number: JP-GILEAD-2021-0547776

PATIENT
  Age: 56 Year
  Sex: Male
  Weight: 72.5 kg

DRUGS (13)
  1. VEKLURY [Suspect]
     Active Substance: REMDESIVIR
     Indication: COVID-19
     Dosage: 200 MG
     Route: 041
     Dates: start: 20210816, end: 20210816
  2. OLUMIANT [Concomitant]
     Active Substance: BARICITINIB
     Dosage: 4 MG, QD
     Route: 048
     Dates: start: 20210816, end: 20210824
  3. TRANSAMIN [Concomitant]
     Active Substance: TRANEXAMIC ACID
     Dosage: 750 MG, TID
     Route: 048
     Dates: start: 20210822, end: 20210825
  4. LANSOPRAZOLE. [Concomitant]
     Active Substance: LANSOPRAZOLE
     Dosage: 15 MG, QD
     Route: 048
     Dates: start: 20210817, end: 20210903
  5. SOLU?MEDROL [Concomitant]
     Active Substance: METHYLPREDNISOLONE SODIUM SUCCINATE
     Dosage: 1000 MG
     Route: 041
     Dates: start: 20210816, end: 20210818
  6. BELSOMRA [Concomitant]
     Active Substance: SUVOREXANT
     Dosage: 20 MG, QHS
     Route: 048
     Dates: start: 20210816, end: 20210824
  7. HEPARIN SODIUM. [Concomitant]
     Active Substance: HEPARIN SODIUM
     Dosage: 1000 UNITS/DAY
     Dates: start: 20210817, end: 20210902
  8. SOLU?MEDROL [Concomitant]
     Active Substance: METHYLPREDNISOLONE SODIUM SUCCINATE
     Dosage: 150 MG
     Route: 041
     Dates: start: 20210819, end: 20210822
  9. RISPERDAL [Concomitant]
     Active Substance: RISPERIDONE
     Dosage: 1 ML, BID
     Route: 048
     Dates: start: 20210821, end: 20210825
  10. VEKLURY [Suspect]
     Active Substance: REMDESIVIR
     Dosage: 100 MG
     Route: 041
     Dates: start: 20210817, end: 20210822
  11. ROZEREM [Concomitant]
     Active Substance: RAMELTEON
     Dosage: 8 MG, QHS
     Route: 048
     Dates: start: 20210817, end: 20210824
  12. DEXART [Concomitant]
     Active Substance: DEXAMETHASONE SODIUM PHOSPHATE
     Dosage: 6.6 MG
  13. AMLODIPINE [AMLODIPINE BESILATE] [Concomitant]
     Active Substance: AMLODIPINE BESYLATE
     Dosage: 5 MG, BID
     Route: 048
     Dates: start: 20210822, end: 20210903

REACTIONS (2)
  - Sinus bradycardia [Recovered/Resolved]
  - Oxygen saturation decreased [Unknown]

NARRATIVE: CASE EVENT DATE: 20210817
